FAERS Safety Report 14836422 (Version 3)
Quarter: 2019Q2

REPORT INFORMATION
  Report Type: Report from Study
  Country: None (occurrence: BR)
  Receive Date: 20180502
  Receipt Date: 20190606
  Transmission Date: 20190711
  Serious: Yes (Hospitalization, Disabling, Other)
  Sender: FDA-Public Use
  Company Number: BR-ABBVIE-18K-020-2338920-00

PATIENT
  Age: 67 Year
  Sex: Female
  Weight: 80 kg

DRUGS (6)
  1. CALCIUM [Concomitant]
     Active Substance: CALCIUM
     Indication: RHEUMATOID ARTHRITIS
  2. METHOTREXATE. [Concomitant]
     Active Substance: METHOTREXATE
     Indication: RHEUMATOID ARTHRITIS
     Dosage: 1 TIME PER WEEK
  3. VITAMIN D [Concomitant]
     Active Substance: VITAMIN D NOS
     Indication: RHEUMATOID ARTHRITIS
  4. VENAFLON [Concomitant]
     Indication: ANGIOPATHY
  5. HUMIRA [Suspect]
     Active Substance: ADALIMUMAB
     Indication: RHEUMATOID ARTHRITIS
     Dosage: DOSE DECREASED
     Route: 058
     Dates: start: 20160202
  6. HUMIRA [Suspect]
     Active Substance: ADALIMUMAB
     Route: 058

REACTIONS (12)
  - Blood pressure abnormal [Unknown]
  - Dysphagia [Not Recovered/Not Resolved]
  - Dyspepsia [Unknown]
  - Chikungunya virus infection [Unknown]
  - Immunodeficiency [Unknown]
  - Magnesium deficiency [Unknown]
  - Seizure [Unknown]
  - Platelet count decreased [Unknown]
  - Cerebrovascular accident [Recovered/Resolved with Sequelae]
  - Weight increased [Unknown]
  - Arthralgia [Unknown]
  - Retching [Unknown]

NARRATIVE: CASE EVENT DATE: 20180110
